FAERS Safety Report 20778812 (Version 1)
Quarter: 2022Q2

REPORT INFORMATION
  Report Type: Spontaneous
  Country: CN (occurrence: CN)
  Receive Date: 20220503
  Receipt Date: 20220503
  Transmission Date: 20220721
  Serious: Yes (Hospitalization, Other)
  Sender: FDA-Public Use
  Company Number: CN-PFIZER INC-202200630274

PATIENT
  Age: 56 Year
  Sex: Male
  Weight: 55 kg

DRUGS (8)
  1. SOLU-MEDROL [Suspect]
     Active Substance: METHYLPREDNISOLONE SODIUM SUCCINATE
     Indication: Chemotherapy
     Dosage: 500 MG, 1X/DAY
     Route: 041
     Dates: start: 20220401, end: 20220404
  2. SOLU-MEDROL [Suspect]
     Active Substance: METHYLPREDNISOLONE SODIUM SUCCINATE
     Indication: Neoplasm
  3. CYTARABINE [Suspect]
     Active Substance: CYTARABINE
     Indication: Chemotherapy
     Dosage: 2.16 G, 1X/DAY
     Route: 041
     Dates: start: 20220405, end: 20220405
  4. CYTARABINE [Suspect]
     Active Substance: CYTARABINE
     Indication: Neoplasm
  5. ETOPOSIDE [Suspect]
     Active Substance: ETOPOSIDE
     Indication: Chemotherapy
     Dosage: 52 MG, 1X/DAY
     Route: 041
     Dates: start: 20220401, end: 20220404
  6. ETOPOSIDE [Suspect]
     Active Substance: ETOPOSIDE
     Indication: Neoplasm
  7. CISPLATIN [Suspect]
     Active Substance: CISPLATIN
     Indication: Chemotherapy
     Dosage: 32.8 MG, 1X/DAY
     Route: 041
     Dates: start: 20220401, end: 20220404
  8. CISPLATIN [Suspect]
     Active Substance: CISPLATIN
     Indication: Neoplasm

REACTIONS (1)
  - Myelosuppression [Unknown]

NARRATIVE: CASE EVENT DATE: 20220406
